FAERS Safety Report 9715122 (Version 4)
Quarter: 2014Q1

REPORT INFORMATION
  Report Type: Spontaneous
  Country: US (occurrence: US)
  Receive Date: 20131126
  Receipt Date: 20140211
  Transmission Date: 20141002
  Serious: Yes (Other)
  Sender: FDA-Public Use
  Company Number: US-RB-060962-13

PATIENT
  Sex: Female

DRUGS (3)
  1. MUCINEX FAST MAX SEVERE COLD, FLU, THROAT LIQUID [Suspect]
     Indication: PRODUCT USED FOR UNKNOWN INDICATION
     Dosage: AS PRESCRIBED 2 TIMES ON 30-OCT-2013, EVERY 4 HOURS ON 31-OCT-2013, 1 TIME ON 01-DEC-2013
     Route: 048
     Dates: start: 20131030
  2. LATANOPROST [Concomitant]
     Indication: PRODUCT USED FOR UNKNOWN INDICATION
  3. COMBIGAN [Concomitant]
     Indication: PRODUCT USED FOR UNKNOWN INDICATION
     Dosage: 1 DROP MORNING, 1 AT NIGHT

REACTIONS (3)
  - Intraocular pressure increased [Recovered/Resolved]
  - Eye pain [Recovered/Resolved]
  - Feeling abnormal [Recovered/Resolved]
